FAERS Safety Report 7754758-4 (Version None)
Quarter: 2011Q3

REPORT INFORMATION
  Report Type: 
  Country: None (occurrence: None)
  Receive Date: 20110916
  Receipt Date: 20110909
  Transmission Date: 20111222
  Serious: Yes (Hospitalization)
  Sender: FDA-Public Use
  Company Number: US-BIOGENIDEC-2010BI008196

PATIENT
  Age: 52 Year
  Sex: Male

DRUGS (2)
  1. STEROIDS (NOS) [Concomitant]
     Indication: STEROID THERAPY
  2. TYSABRI [Suspect]
     Indication: MULTIPLE SCLEROSIS
     Route: 042
     Dates: start: 20070104, end: 20101227

REACTIONS (6)
  - ARTHRALGIA [None]
  - PNEUMONIA [None]
  - HIP FRACTURE [None]
  - STRESS FRACTURE [None]
  - CYSTITIS [None]
  - HIP ARTHROPLASTY [None]
